FAERS Safety Report 9868506 (Version 1)
Quarter: 2014Q1

REPORT INFORMATION
  Report Type: Spontaneous
  Country: PR (occurrence: PR)
  Receive Date: 20140204
  Receipt Date: 20140204
  Transmission Date: 20141002
  Serious: No
  Sender: FDA-Public Use
  Company Number: PR-BAXTER-2014BAX003289

PATIENT
  Age: 2 Month
  Sex: 0
  Weight: 2.19 kg

DRUGS (7)
  1. 70% DEXTROSE INJECTION USP [Suspect]
     Indication: PARENTERAL NUTRITION
     Route: 065
  2. STERILE WATER FOR INJECTION USP [Suspect]
     Indication: PARENTERAL NUTRITION
     Route: 065
  3. CA GLUCONATE [Suspect]
     Indication: PARENTERAL NUTRITION
     Route: 065
  4. POTASSIUM CHLORIDE [Suspect]
     Indication: PARENTERAL NUTRITION
     Route: 065
  5. POTASSIUM PHOSPHATE [Suspect]
     Indication: PARENTERAL NUTRITION
     Route: 065
  6. SODIUM CHLORIDE [Suspect]
     Indication: PARENTERAL NUTRITION
     Route: 065
  7. HEPATAMINE [Suspect]
     Indication: PARENTERAL NUTRITION
     Route: 065

REACTIONS (2)
  - Incorrect drug administration rate [Recovered/Resolved]
  - Wrong technique in drug usage process [Recovered/Resolved]
